FAERS Safety Report 16783906 (Version 1)
Quarter: 2019Q3

REPORT INFORMATION
  Report Type: Spontaneous
  Country: US (occurrence: US)
  Receive Date: 20190909
  Receipt Date: 20190909
  Transmission Date: 20191005
  Serious: Yes (Other)
  Sender: FDA-Public Use
  Company Number: US-STRIDES ARCOLAB LIMITED-2018SP008667

PATIENT

DRUGS (7)
  1. PEGINTERFERON ALFA-2A. [Concomitant]
     Active Substance: PEGINTERFERON ALFA-2A
     Indication: LIVER TRANSPLANT
     Dosage: 180 ?G WEEKLY
     Route: 058
  2. PEGINTERFERON ALFA-2A. [Concomitant]
     Active Substance: PEGINTERFERON ALFA-2A
     Dosage: 180 ?G WEEKLY
     Route: 058
  3. TACROLIMUS. [Suspect]
     Active Substance: TACROLIMUS
     Indication: LIVER TRANSPLANT
     Dosage: UNK
     Route: 065
  4. RIBAVIRIN. [Concomitant]
     Active Substance: RIBAVIRIN
     Dosage: 600 MG, PER DAY
     Route: 065
  5. RIBAVIRIN. [Concomitant]
     Active Substance: RIBAVIRIN
     Indication: LIVER TRANSPLANT
     Dosage: 600 MG, PER DAY
     Route: 065
  6. CYCLOSPORINE. [Concomitant]
     Active Substance: CYCLOSPORINE
     Indication: LIVER TRANSPLANT
     Dosage: UNK
     Route: 065
  7. TELAPREVIR [Interacting]
     Active Substance: TELAPREVIR
     Indication: LIVER TRANSPLANT
     Dosage: 1125 MG, BID WITH FOOD (NOT LOW FAT)
     Route: 065

REACTIONS (4)
  - Vomiting [Unknown]
  - Pain [Unknown]
  - Drug interaction [Unknown]
  - Nausea [Unknown]
